FAERS Safety Report 8547717-5 (Version None)
Quarter: 2012Q3

REPORT INFORMATION
  Report Type: 
  Country: None (occurrence: None)
  Receive Date: 20120727
  Receipt Date: 20120430
  Transmission Date: 20120928
  Serious: No
  Sender: FDA-Public Use
  Company Number: US-ASTRAZENECA-2012SE28132

PATIENT
  Sex: Female

DRUGS (1)
  1. SEROQUEL XR [Suspect]
     Route: 048

REACTIONS (8)
  - NASAL DRYNESS [None]
  - DRY EYE [None]
  - ADVERSE EVENT [None]
  - DYSURIA [None]
  - DRY SKIN [None]
  - CONSTIPATION [None]
  - DEHYDRATION [None]
  - APTYALISM [None]
